FAERS Safety Report 22304413 (Version 1)
Quarter: 2023Q2

REPORT INFORMATION
  Report Type: Spontaneous
  Country: US (occurrence: US)
  Receive Date: 20230510
  Receipt Date: 20230510
  Transmission Date: 20230722
  Serious: No
  Sender: FDA-Public Use
  Company Number: US-SANOFI-01601878

PATIENT
  Sex: Male

DRUGS (1)
  1. LANTUS SOLOSTAR [Suspect]
     Active Substance: INSULIN GLARGINE
     Indication: Diabetes mellitus
     Dosage: UNK

REACTIONS (6)
  - Dizziness [Unknown]
  - Appetite disorder [Unknown]
  - Feeling abnormal [Unknown]
  - Weight increased [Unknown]
  - Limb injury [Unknown]
  - Blood glucose increased [Unknown]
